FAERS Safety Report 10100404 (Version 1)
Quarter: 2014Q2

REPORT INFORMATION
  Report Type: Spontaneous
  Country: GB (occurrence: GB)
  Receive Date: 20140423
  Receipt Date: 20140423
  Transmission Date: 20141212
  Serious: Yes (Hospitalization)
  Sender: FDA-Public Use
  Company Number: GB-WATSON-2014-07943

PATIENT
  Age: 28 Year
  Sex: 0

DRUGS (11)
  1. CIPROFLOXACIN HYDROCHLORIDE (UNKNOWN) [Suspect]
     Indication: NEUTROPENIC SEPSIS
     Dosage: 500 MG, BID
     Route: 048
     Dates: start: 20120514, end: 20120521
  2. CIPROFLOXACIN HYDROCHLORIDE (UNKNOWN) [Suspect]
     Dosage: 500 MG, BID
     Route: 048
     Dates: start: 20120419, end: 20120503
  3. CO-AMOXICLAV [Suspect]
     Indication: PRODUCT USED FOR UNKNOWN INDICATION
     Dosage: 625 MG, TID - 500MG/125MG
     Route: 048
     Dates: start: 20120523, end: 20120530
  4. GENTAMICIN (UNKNOWN) [Suspect]
     Indication: PRODUCT USED FOR UNKNOWN INDICATION
     Dosage: 360 MG, UNKNOWN - STAT DOSE. 80MG/2ML.
     Route: 041
     Dates: start: 20120523
  5. ITRACONAZOLE (UNKNOWN) [Suspect]
     Indication: NEUTROPENIC SEPSIS
     Dosage: UNK - 50MG/5ML
     Route: 065
     Dates: start: 20120419, end: 20120428
  6. MEROPENEM (UNKNOWN) [Suspect]
     Indication: NEUTROPENIC SEPSIS
     Dosage: 1 G, TID
     Route: 041
     Dates: start: 20120506, end: 20120514
  7. PENTAMIDINE ISETHIONATE (WATSON LABORATORIES) [Suspect]
     Indication: PRODUCT USED FOR UNKNOWN INDICATION
     Dosage: UNK - STAT DOSE. 300MG/5ML.
     Route: 045
     Dates: start: 20120503
  8. AMBISOME [Suspect]
     Indication: PRODUCT USED FOR UNKNOWN INDICATION
     Dosage: 50 MG, UNKNOWN
     Route: 041
     Dates: start: 20120428, end: 20120523
  9. TAZOCIN [Suspect]
     Indication: PRODUCT USED FOR UNKNOWN INDICATION
     Dosage: 4.5 G, TID
     Route: 041
     Dates: start: 20120503, end: 20120506
  10. PANTOPRAZOLE [Concomitant]
     Indication: PRODUCT USED FOR UNKNOWN INDICATION
     Dosage: UNK
     Route: 042
  11. LANSOPRAZOLE [Concomitant]
     Indication: PRODUCT USED FOR UNKNOWN INDICATION
     Dosage: 30 MG, DAILY
     Route: 065

REACTIONS (1)
  - Clostridium difficile infection [Unknown]
